FAERS Safety Report 4557946-3 (Version None)
Quarter: 2005Q1

REPORT INFORMATION
  Report Type: 
  Country: None (occurrence: None)
  Receive Date: 20050121
  Receipt Date: 20040225
  Transmission Date: 20050727
  Serious: No
  Sender: FDA-Public Use
  Company Number: US-BRISTOL-MYERS SQUIBB COMPANY-12516787

PATIENT
  Age: 31 Year
  Sex: Male

DRUGS (4)
  1. SERZONE [Suspect]
     Dosage: UP TO 250 MG AT BEDTIME IN JAN-02
     Route: 048
  2. RISPERDAL [Concomitant]
  3. WELLBUTRIN SR [Concomitant]
  4. EFFEXOR XR [Concomitant]

REACTIONS (1)
  - ALANINE AMINOTRANSFERASE INCREASED [None]
